FAERS Safety Report 6107425-7 (Version None)
Quarter: 2009Q1

REPORT INFORMATION
  Report Type: 
  Country: None (occurrence: None)
  Receive Date: 20090309
  Receipt Date: 20090225
  Transmission Date: 20090719
  Serious: Yes (Death, Life-Threatening)
  Sender: FDA-Public Use
  Company Number: FR-PFIZER INC-2009176624

PATIENT

DRUGS (3)
  1. TRIFLUCAN [Suspect]
     Indication: CANDIDIASIS
     Dosage: UNK
     Dates: start: 20070614, end: 20070702
  2. TOPALGIC [Suspect]
     Dosage: UNK
     Dates: start: 20070702, end: 20070712
  3. MOPRAL [Suspect]
     Dosage: UNK
     Dates: start: 20070705, end: 20070717

REACTIONS (3)
  - ENCEPHALOPATHY [None]
  - MYOCLONUS [None]
  - STATUS EPILEPTICUS [None]
